FAERS Safety Report 15771955 (Version 5)
Quarter: 2019Q1

REPORT INFORMATION
  Report Type: Report from Study
  Country: PL (occurrence: PL)
  Receive Date: 20181228
  Receipt Date: 20190215
  Transmission Date: 20190417
  Serious: Yes (Hospitalization)
  Sender: FDA-Public Use
  Company Number: PL-EISAI MEDICAL RESEARCH-EC-2018-036890

PATIENT
  Age: 66 Year
  Sex: Female
  Weight: 57 kg

DRUGS (9)
  1. PEMBROLIZUMAB. [Suspect]
     Active Substance: PEMBROLIZUMAB
     Indication: RENAL CELL CARCINOMA
     Route: 041
     Dates: start: 20171215
  2. MATRIFEN [Concomitant]
     Active Substance: FENTANYL
  3. OXYCONTIN [Concomitant]
     Active Substance: OXYCODONE HYDROCHLORIDE
  4. NEAPARIN [Concomitant]
  5. FRAXIPARINE [Concomitant]
     Active Substance: NADROPARIN CALCIUM
  6. LENVATINIB [Suspect]
     Active Substance: LENVATINIB
     Indication: RENAL CELL CARCINOMA
     Route: 048
     Dates: start: 20171215
  7. PRAMOLAN [Concomitant]
     Active Substance: OPIPRAMOL HYDROCHLORIDE
  8. PPI [Concomitant]
     Active Substance: UNSPECIFIED INGREDIENT
  9. NEDAL [Concomitant]
     Active Substance: NEBIVOLOL HYDROCHLORIDE

REACTIONS (3)
  - Metastases to bone [Unknown]
  - Pathological fracture [Not Recovered/Not Resolved]
  - Hypertransaminasaemia [Recovered/Resolved]

NARRATIVE: CASE EVENT DATE: 2018
